FAERS Safety Report 6573901-6 (Version None)
Quarter: 2010Q1

REPORT INFORMATION
  Report Type: 
  Country: None (occurrence: None)
  Receive Date: 20100208
  Receipt Date: 20100125
  Transmission Date: 20100710
  Serious: Yes (Death)
  Sender: FDA-Public Use
  Company Number: GB-MYLANLABS-2009S1004598

PATIENT
  Age: 56 Year
  Sex: Male
  Weight: 74 kg

DRUGS (9)
  1. CITALOPRAM HYDROBROMIDE [Suspect]
     Indication: DEPRESSION
     Dates: start: 20090102
  2. CITALOPRAM HYDROBROMIDE [Suspect]
     Dates: start: 20090123
  3. ATENOLOL [Concomitant]
     Indication: BLOOD PRESSURE
     Route: 048
     Dates: start: 20080826
  4. DIGOXIN [Concomitant]
     Indication: ATRIAL FIBRILLATION
     Route: 048
     Dates: start: 20081216
  5. PERINDOPRIL [Concomitant]
     Indication: BLOOD PRESSURE
     Route: 048
     Dates: start: 20060724
  6. WARFARIN SODIUM [Concomitant]
     Indication: HEART VALVE REPLACEMENT
     Route: 048
     Dates: start: 20080625
  7. DIAZEPAM [Concomitant]
     Indication: INSOMNIA
  8. TEMAZEPAM [Concomitant]
     Indication: SLEEP DISORDER
  9. ZOLPIDEM [Concomitant]
     Indication: SLEEP DISORDER
     Dates: start: 20090107

REACTIONS (3)
  - COMPLETED SUICIDE [None]
  - PARAESTHESIA [None]
  - POOR QUALITY SLEEP [None]
